FAERS Safety Report 9379999 (Version 1)
Quarter: 2013Q3

REPORT INFORMATION
  Report Type: Spontaneous
  Country: US (occurrence: US)
  Receive Date: 20130702
  Receipt Date: 20130702
  Transmission Date: 20140515
  Serious: No
  Sender: FDA-Public Use
  Company Number: US-PFIZER INC-2013194711

PATIENT
  Sex: Female

DRUGS (8)
  1. FLAGYL [Suspect]
     Dosage: UNK
  2. CRESTOR [Suspect]
     Dosage: UNK
  3. JANUVIA [Suspect]
     Dosage: UNK
  4. LEVAQUIN [Suspect]
     Dosage: UNK
  5. LOVASTATIN [Suspect]
     Dosage: UNK
  6. MOBIC [Suspect]
     Dosage: UNK
  7. PERCOCET [Suspect]
     Dosage: UNK
  8. VICODIN [Suspect]
     Dosage: UNK

REACTIONS (1)
  - Drug hypersensitivity [Unknown]
